FAERS Safety Report 20633657 (Version 1)
Quarter: 2022Q1

REPORT INFORMATION
  Report Type: Other
  Country: US (occurrence: None)
  Receive Date: 20220324
  Receipt Date: 20220324
  Transmission Date: 20220423
  Serious: No
  Sender: FDA-Public Use
  Company Number: US-ROCHE-3049991

PATIENT
  Age: 56 Year
  Sex: Female
  Weight: 127.12 kg

DRUGS (12)
  1. OCREVUS [Suspect]
     Active Substance: OCRELIZUMAB
     Indication: Primary progressive multiple sclerosis
     Dosage: INITIALLY 300 MG DAY 1 AND DAY 15;  LAST INFUSION DATE: 28/JAN/2022, NEXT INFUSION DATE: 17/AUG/2020
     Route: 042
     Dates: start: 201711
  2. BASAGLAR [Concomitant]
     Active Substance: INSULIN GLARGINE
     Indication: Diabetes mellitus
     Dosage: 70 UNITS ;ONGOING: YES
     Route: 058
  3. CITALOPRAM [Concomitant]
     Active Substance: CITALOPRAM HYDROBROMIDE
     Dosage: YES
     Route: 048
  4. LISINOPRIL [Concomitant]
     Active Substance: LISINOPRIL
     Dosage: YES
     Route: 048
  5. POTASSIUM [Concomitant]
     Active Substance: POTASSIUM
     Dosage: YES
     Route: 048
  6. POTASSIUM [Concomitant]
     Active Substance: POTASSIUM
     Dosage: YES
     Route: 048
  7. FISH OIL [Concomitant]
     Active Substance: FISH OIL
     Dosage: YES
     Route: 048
  8. BACLOFEN [Concomitant]
     Active Substance: BACLOFEN
  9. BACLOFEN [Concomitant]
     Active Substance: BACLOFEN
  10. INSULIN NOS [Concomitant]
     Active Substance: INSULIN NOS
  11. LASIX [Concomitant]
     Active Substance: FUROSEMIDE
  12. AVONEX [Concomitant]
     Active Substance: INTERFERON BETA-1A

REACTIONS (1)
  - COVID-19 [Recovered/Resolved]

NARRATIVE: CASE EVENT DATE: 20211101
